FAERS Safety Report 11957092 (Version 3)
Quarter: 2016Q1

REPORT INFORMATION
  Report Type: Spontaneous
  Country: US (occurrence: US)
  Receive Date: 20160126
  Receipt Date: 20160212
  Transmission Date: 20160526
  Serious: Yes (Death, Hospitalization)
  Sender: FDA-Public Use
  Company Number: US-ACTELION-A-US2014-109603

PATIENT
  Age: 76 Year
  Sex: Male

DRUGS (4)
  1. VELETRI [Suspect]
     Active Substance: EPOPROSTENOL
     Dosage: 38 NG/KG, UNK
     Route: 042
  2. VELETRI [Suspect]
     Active Substance: EPOPROSTENOL
     Indication: PULMONARY ARTERIAL HYPERTENSION
     Dosage: 31.5 NG/KG, PER MIN
     Route: 042
     Dates: start: 20140224
  3. ADCIRCA [Concomitant]
     Active Substance: TADALAFIL
  4. OXYGEN. [Concomitant]
     Active Substance: OXYGEN

REACTIONS (2)
  - Fluid overload [Unknown]
  - Death [Fatal]
